FAERS Safety Report 13849618 (Version 3)
Quarter: 2017Q3

REPORT INFORMATION
  Report Type: Spontaneous
  Country: US (occurrence: US)
  Receive Date: 20170809
  Receipt Date: 20170817
  Transmission Date: 20171127
  Serious: No
  Sender: FDA-Public Use
  Company Number: US-PFIZER INC-2017340302

PATIENT
  Age: 69 Year
  Sex: Female
  Weight: 109 kg

DRUGS (23)
  1. VITAMIN B12 [Concomitant]
     Active Substance: CYANOCOBALAMIN
     Indication: MOOD ALTERED
     Dosage: 2500 UG, DAILY (ONE A DAY,FOR CLOSE TO 10 YEARS)
     Route: 048
  2. ATARAX [Concomitant]
     Active Substance: HYDROXYZINE HYDROCHLORIDE
     Indication: INSOMNIA
     Dosage: 50 MG, DAILY (ONE A DAY)
     Route: 048
  3. PRISTIQ EXTENDED-RELEASE [Suspect]
     Active Substance: DESVENLAFAXINE SUCCINATE
     Indication: DEPRESSION
     Dosage: 50 MG, 1X/DAY (IN THE AM)
     Route: 048
     Dates: start: 201704, end: 2017
  4. LEVOTHYROXINE. [Concomitant]
     Active Substance: LEVOTHYROXINE
     Indication: HYPOTHYROIDISM
     Dosage: 100 UG, 1X/DAY (HAS BEEN TAKING FOR LAST 20 YEARS AGO)
     Route: 048
  5. GLUCOSAMINE CHONDROITIN [Concomitant]
     Active Substance: CHONDROITIN SULFATE (BOVINE)\GLUCOSAMINE HYDROCHLORIDE
     Indication: ARTHROPATHY
     Dosage: UNK UNK, 1X/DAY [GLUCOSAMINE: 1500/CHONDROITIN: 1200] (FOR 10 YEARS)
     Route: 048
  6. NEXIUM [Concomitant]
     Active Substance: ESOMEPRAZOLE MAGNESIUM
     Indication: HYPERCHLORHYDRIA
     Dosage: 45 MG, 1X/DAY (2 CAPSULES ONCE A DAY BY MOUTH, FOR CLOSE TO 5-10 YEARS)
     Route: 048
  7. VITAMIN B COMPLEX [Concomitant]
     Active Substance: CYANOCOBALAMIN\DEXPANTHENOL\NIACINAMIDE\PYRIDOXINE HYDROCHLORIDE\RIBOFLAVIN 5^-PHOSPHATE SODIUM\THIAMINE HYDROCHLORIDE\VITAMIN B COMPLEX
     Indication: NEURALGIA
     Dosage: 1 DF, 1X/DAY (1 CAPSULE ONCE A DAY, FOR THE PAST 4 MONTHS)
  8. COENZYME Q10 [Concomitant]
     Active Substance: UBIDECARENONE
     Indication: CARDIAC DISORDER
     Dosage: 200 MG, DAILY (GELCAP, ONE A DAY BY MOUTH, FOR THE LAST 4-5 YEARS)
     Route: 048
  9. CRESTOR [Concomitant]
     Active Substance: ROSUVASTATIN CALCIUM
     Indication: BLOOD CHOLESTEROL
     Dosage: 10 MG, 1X/DAY (AT LEAST 10 YEARS)
     Route: 048
  10. TEMAZEPAM. [Concomitant]
     Active Substance: TEMAZEPAM
     Indication: SLEEP APNOEA SYNDROME
     Dosage: 15 MG, 1X/DAY (15MG, CAPSULE, BY MOUTH, ONCE A DAY, FOR 6 YEARS)
     Route: 048
  11. QUDEXY XR [Concomitant]
     Active Substance: TOPIRAMATE
     Indication: DEPRESSION
     Dosage: 50 MG, 1X/DAY
     Route: 048
     Dates: start: 201704
  12. VITAMIN C [Concomitant]
     Active Substance: ASCORBIC ACID
     Indication: ROUTINE HEALTH MAINTENANCE
     Dosage: 2000 MG, DAILY (HAS BEEN TAKING FOR 5 YEARS)
     Route: 048
  13. OMEGA 3 [Concomitant]
     Active Substance: OMEGA-3 FATTY ACIDS
     Indication: CARDIAC DISORDER
     Dosage: 1200 MG, 1X/DAY (HAS BEEN TAKING FOR THE LAST 3 YEARS)
     Route: 048
  14. VITAMIN D3 [Concomitant]
     Active Substance: CHOLECALCIFEROL
     Indication: DEPRESSION
     Dosage: 5000 IU, 1X/DAY (GELCAP, TAKING FOR THE PAST 4 OR 5 YEARS, GAVE HER A MEGA DOSE FOR ABOUT 4 WEEKS)
     Route: 048
  15. VITAMIN D3 [Concomitant]
     Active Substance: CHOLECALCIFEROL
     Indication: VITAMIN D DEFICIENCY
  16. MAGNESIUM OXIDE. [Concomitant]
     Active Substance: MAGNESIUM OXIDE
     Indication: CONSTIPATION
     Dosage: 500 MG, 1X/DAY (FOR ABOUT 3 WEEKS)
  17. DEPLIN [Concomitant]
     Active Substance: LEVOMEFOLATE CALCIUM
     Indication: ANTIDEPRESSANT DRUG LEVEL INCREASED
     Dosage: 15 MG, 1X/DAY (HAS BEEN TAKING FOR THE PAST 3 YEARS AGO, OTHERWISE KNOWN AS FOLIC ACID)
     Route: 048
  18. CENTRUM SILVER +50 [Concomitant]
     Indication: HYPOVITAMINOSIS
     Dosage: UNK UNK, DAILY (ONE A DAY, FOR THE LAST 20 YEARS)
     Route: 048
  19. MIRAPEX [Concomitant]
     Active Substance: PRAMIPEXOLE DIHYDROCHLORIDE
     Indication: RESTLESS LEGS SYNDROME
     Dosage: 1 MG, 1X/DAY (1 MG TABLET BY MOUTH, ONCE A DAY)
     Route: 048
     Dates: start: 201706
  20. ASPIRIN. [Concomitant]
     Active Substance: ASPIRIN
     Indication: CARDIAC DISORDER
     Dosage: 81 MG, 1X/DAY (FOR THE PAST 15-20 YEARS)
     Route: 048
  21. ATARAX [Concomitant]
     Active Substance: HYDROXYZINE HYDROCHLORIDE
     Indication: ANXIETY
  22. PRISTIQ EXTENDED-RELEASE [Suspect]
     Active Substance: DESVENLAFAXINE SUCCINATE
     Dosage: 100 MG, 1X/DAY (IN THE MORNING)
     Route: 048
     Dates: start: 2017
  23. CYTOMEL [Concomitant]
     Active Substance: LIOTHYRONINE SODIUM
     Indication: HYPOTHYROIDISM
     Dosage: 5 UG, 1X/DAY (IN THE AM)
     Route: 048
     Dates: start: 2015

REACTIONS (7)
  - Paraesthesia [Unknown]
  - Glossodynia [Not Recovered/Not Resolved]
  - Dysgeusia [Not Recovered/Not Resolved]
  - Swollen tongue [Not Recovered/Not Resolved]
  - Abdominal distension [Unknown]
  - Dysphagia [Unknown]
  - Hypoaesthesia [Unknown]
